FAERS Safety Report 4866394-8 (Version None)
Quarter: 2005Q4

REPORT INFORMATION
  Report Type: 
  Country: None (occurrence: None)
  Receive Date: 20051227
  Receipt Date: 20050912
  Transmission Date: 20060501
  Serious: Yes (Hospitalization, Disabling)
  Sender: FDA-Public Use
  Company Number: US-MERCK-0509USA01528

PATIENT
  Age: 54 Year
  Sex: Female
  Weight: 82 kg

DRUGS (30)
  1. VIOXX [Suspect]
     Indication: OSTEOARTHRITIS
     Route: 048
     Dates: start: 20021104, end: 20040411
  2. VIOXX [Suspect]
     Route: 048
     Dates: start: 20020121, end: 20020711
  3. PREVACID [Concomitant]
     Route: 065
  4. ZOCOR [Concomitant]
     Route: 065
  5. EFFEXOR [Concomitant]
     Route: 065
  6. PREMARIN [Concomitant]
     Route: 065
  7. XANAX [Concomitant]
     Route: 065
  8. AMBIEN [Concomitant]
     Route: 065
  9. ZESTRIL [Concomitant]
     Route: 065
  10. ASPIRIN [Concomitant]
     Route: 065
  11. TOPROL-XL [Concomitant]
     Route: 065
  12. PROVENTIL [Concomitant]
     Route: 065
  13. AZMACORT [Concomitant]
     Route: 065
  14. ESTRADERM [Concomitant]
     Route: 065
  15. NITROSTAT [Concomitant]
     Route: 065
  16. PLAVIX [Concomitant]
     Route: 065
  17. NASONEX [Concomitant]
     Route: 065
  18. BEXTRA [Concomitant]
     Route: 065
  19. DIOVAN [Concomitant]
     Route: 065
  20. MIDRIN [Concomitant]
     Route: 065
  21. SINGULAIR [Concomitant]
     Route: 065
  22. LOTREL [Concomitant]
     Route: 065
  23. LEVAQUIN [Concomitant]
     Route: 065
  24. ALLEGRA [Concomitant]
     Route: 065
  25. ZYRTEC [Concomitant]
     Route: 065
  26. VITAMINS (UNSPECIFIED) [Concomitant]
     Route: 065
  27. CALCIUM (UNSPECIFIED) [Concomitant]
     Route: 065
  28. VITAMIN D (UNSPECIFIED) [Concomitant]
     Route: 065
  29. ELIDEL [Concomitant]
     Route: 065
  30. BREVOXYL [Concomitant]
     Route: 065

REACTIONS (7)
  - ACUTE MYOCARDIAL INFARCTION [None]
  - DEPRESSION [None]
  - HEADACHE [None]
  - LOWER EXTREMITY MASS [None]
  - MITRAL VALVE PROLAPSE [None]
  - PALPITATIONS [None]
  - SUPRAVENTRICULAR TACHYCARDIA [None]
